FAERS Safety Report 14405308 (Version 28)
Quarter: 2021Q1

REPORT INFORMATION
  Report Type: Report from Study
  Country: CA (occurrence: CA)
  Receive Date: 20180118
  Receipt Date: 20210111
  Transmission Date: 20210419
  Serious: Yes (Hospitalization, Other)
  Sender: FDA-Public Use
  Company Number: PHHY2015CA077126

PATIENT
  Age: 71 Year
  Sex: Male

DRUGS (12)
  1. SANDOSTATIN LAR DEPOT [Suspect]
     Active Substance: OCTREOTIDE ACETATE
     Dosage: 60 MG QMO
     Route: 030
     Dates: start: 20160302
  2. SANDOSTATIN [Suspect]
     Active Substance: OCTREOTIDE ACETATE
  3. BISOPROLOL [Concomitant]
     Active Substance: BISOPROLOL
     Indication: PRODUCT USED FOR UNKNOWN INDICATION
     Dosage: UNK
     Route: 065
  4. SANDOSTATIN LAR DEPOT [Suspect]
     Active Substance: OCTREOTIDE ACETATE
     Dosage: 40 MG, QMO
     Route: 030
     Dates: start: 20151127
  5. SANDOSTATIN LAR DEPOT [Suspect]
     Active Substance: OCTREOTIDE ACETATE
     Indication: NEUROENDOCRINE CARCINOMA METASTATIC
     Dosage: 40 MG, QMO (EVERY 4 WEEKS)
     Route: 030
     Dates: start: 20150623
  6. SANDOSTATIN [Suspect]
     Active Substance: OCTREOTIDE ACETATE
     Indication: NEUROENDOCRINE CARCINOMA METASTATIC
     Dosage: 100 UG, TID
     Route: 058
     Dates: start: 20150609, end: 2015
  7. ASPIRIN. [Concomitant]
     Active Substance: ASPIRIN
     Indication: PRODUCT USED FOR UNKNOWN INDICATION
     Dosage: UNK
     Route: 065
  8. SANDOSTATIN LAR DEPOT [Suspect]
     Active Substance: OCTREOTIDE ACETATE
     Dosage: 40 MG, QMO
     Route: 030
  9. METFORMIN [Suspect]
     Active Substance: METFORMIN HYDROCHLORIDE
     Indication: PRODUCT USED FOR UNKNOWN INDICATION
     Dosage: UNK
     Route: 065
  10. SANDOSTATIN [Suspect]
     Active Substance: OCTREOTIDE ACETATE
  11. HYDROCHLOROTHIAZIDE. [Concomitant]
     Active Substance: HYDROCHLOROTHIAZIDE
     Indication: PRODUCT USED FOR UNKNOWN INDICATION
     Dosage: UNK
     Route: 065
  12. AMIODARONE [Concomitant]
     Active Substance: AMIODARONE
     Indication: PRODUCT USED FOR UNKNOWN INDICATION
     Dosage: UNK
     Route: 065

REACTIONS (50)
  - Pain in extremity [Recovering/Resolving]
  - Angina pectoris [Unknown]
  - Hypertension [Unknown]
  - Flushing [Unknown]
  - Hypokinesia [Unknown]
  - Malaise [Unknown]
  - Inguinal hernia [Unknown]
  - Atrial fibrillation [Unknown]
  - Decreased interest [Unknown]
  - Feeling hot [Unknown]
  - Heart rate increased [Unknown]
  - Abdominal distension [Unknown]
  - Mood altered [Unknown]
  - Blood pressure diastolic decreased [Unknown]
  - Weight decreased [Unknown]
  - Ocular hyperaemia [Unknown]
  - Depression [Unknown]
  - Dizziness [Not Recovered/Not Resolved]
  - Oedema [Recovering/Resolving]
  - Decreased appetite [Unknown]
  - Anaemia [Unknown]
  - Gastrooesophageal reflux disease [Unknown]
  - Feeling abnormal [Unknown]
  - Blood glucose fluctuation [Unknown]
  - Palpitations [Unknown]
  - Anxiety [Unknown]
  - Pain in jaw [Unknown]
  - Therapy non-responder [Unknown]
  - Neuroendocrine carcinoma metastatic [Unknown]
  - Leukaemia [Unknown]
  - Head injury [Recovering/Resolving]
  - Heart rate decreased [Unknown]
  - Fatigue [Unknown]
  - Abdominal pain [Unknown]
  - Discomfort [Unknown]
  - Memory impairment [Unknown]
  - Injection site pain [Unknown]
  - Malignant neoplasm progression [Unknown]
  - Arthralgia [Recovering/Resolving]
  - Fall [Unknown]
  - Asthenia [Unknown]
  - Swelling [Unknown]
  - Panic attack [Unknown]
  - Injection site bruising [Recovered/Resolved]
  - Haematoma [Recovering/Resolving]
  - Blood pressure systolic increased [Unknown]
  - Erythema [Unknown]
  - Confusional state [Unknown]
  - Chest pain [Unknown]
  - Needle issue [Unknown]

NARRATIVE: CASE EVENT DATE: 20150623
